FAERS Safety Report 4610788-2 (Version None)
Quarter: 2005Q2

REPORT INFORMATION
  Report Type: 
  Country: None (occurrence: None)
  Receive Date: 20050223
  Receipt Date: 20040113
  Transmission Date: 20051028
  Serious: Yes (Other)
  Sender: FDA-Public Use
  Company Number: WAES0312USA01407

PATIENT
  Age: 90 Year
  Sex: Female
  Weight: 58.9676 kg

DRUGS (11)
  1. ZOCOR [Suspect]
     Indication: DYSLIPIDAEMIA
     Dosage: 40 MG/ HS/ PO; 10 MG/ DAILY/ PO
     Route: 048
     Dates: start: 19991101, end: 20031215
  2. ZOCOR [Suspect]
     Indication: HYPERCHOLESTEROLAEMIA
     Dosage: 40 MG/ HS/ PO; 10 MG/ DAILY/ PO
     Route: 048
     Dates: start: 19991101, end: 20031215
  3. ZOCOR [Suspect]
     Indication: DYSLIPIDAEMIA
     Dosage: 40 MG/ HS/ PO; 10 MG/ DAILY/ PO
     Route: 048
     Dates: start: 20031216, end: 20031229
  4. ZOCOR [Suspect]
     Indication: HYPERCHOLESTEROLAEMIA
     Dosage: 40 MG/ HS/ PO; 10 MG/ DAILY/ PO
     Route: 048
     Dates: start: 20031216, end: 20031229
  5. PREMARIN [Concomitant]
  6. SYNTHROID [Concomitant]
  7. ASPIRIN [Concomitant]
  8. LABETALOL HYDROCHLORIDE [Concomitant]
  9. SPIRONOLACTONE [Concomitant]
  10. VITAMINS (UNSPECIFIED) [Concomitant]
  11. . [Concomitant]

REACTIONS (4)
  - BLOOD CHLORIDE INCREASED [None]
  - BLOOD CREATININE INCREASED [None]
  - BLOOD UREA INCREASED [None]
  - RHABDOMYOLYSIS [None]
